FAERS Safety Report 12505957 (Version 3)
Quarter: 2016Q3

REPORT INFORMATION
  Report Type: Report from Study
  Country: US (occurrence: US)
  Receive Date: 20160628
  Receipt Date: 20160727
  Transmission Date: 20161109
  Serious: Yes (Hospitalization)
  Sender: FDA-Public Use
  Company Number: US-CELGENEUS-USA-2016066283

PATIENT
  Age: 67 Year
  Sex: Female
  Weight: 124 kg

DRUGS (11)
  1. METOPROLOL. [Concomitant]
     Active Substance: METOPROLOL
     Indication: HYPERTENSION
     Route: 065
  2. FONDAPARINUX [Concomitant]
     Active Substance: FONDAPARINUX
     Indication: DEEP VEIN THROMBOSIS
     Route: 065
  3. REVLIMID [Suspect]
     Active Substance: LENALIDOMIDE
     Indication: PLASMA CELL MYELOMA
     Route: 048
     Dates: start: 20101001, end: 20111012
  4. FONDAPARINUX [Concomitant]
     Active Substance: FONDAPARINUX
     Indication: THROMBOSIS PROPHYLAXIS
  5. LEVOTHYROXINE. [Concomitant]
     Active Substance: LEVOTHYROXINE
     Indication: HYPOTHYROIDISM
     Route: 065
  6. LEVOTHYROXINE. [Concomitant]
     Active Substance: LEVOTHYROXINE
     Indication: THROMBOSIS PROPHYLAXIS
  7. LOSARTAN. [Concomitant]
     Active Substance: LOSARTAN
     Indication: THROMBOSIS PROPHYLAXIS
  8. REVLIMID [Suspect]
     Active Substance: LENALIDOMIDE
     Route: 048
     Dates: start: 20111205, end: 20160623
  9. LASIX [Concomitant]
     Active Substance: FUROSEMIDE
     Indication: OEDEMA PERIPHERAL
     Route: 065
  10. LOSARTAN. [Concomitant]
     Active Substance: LOSARTAN
     Indication: HYPERTENSION
     Route: 065
  11. METOPROLOL. [Concomitant]
     Active Substance: METOPROLOL
     Indication: THROMBOSIS PROPHYLAXIS

REACTIONS (2)
  - Upper respiratory tract infection [Recovered/Resolved]
  - Cellulitis [Recovered/Resolved]

NARRATIVE: CASE EVENT DATE: 20160420
